FAERS Safety Report 12228382 (Version 1)
Quarter: 2016Q1

REPORT INFORMATION
  Report Type: Spontaneous
  Country: US (occurrence: None)
  Receive Date: 20160330
  Receipt Date: 20160330
  Transmission Date: 20160526
  Serious: Yes (Life-Threatening, Hospitalization)
  Sender: FDA-Public Use
  Company Number: None

PATIENT
  Age: 75 Year
  Sex: Female
  Weight: 81.65 kg

DRUGS (3)
  1. WARFARIN [Suspect]
     Active Substance: WARFARIN
     Indication: THROMBOSIS
     Dosage: IT VARRIED 2 PILLS ONCE DAILY
     Route: 048
     Dates: start: 20120720, end: 20140721
  2. VITAMIN C [Concomitant]
     Active Substance: ASCORBIC ACID
  3. MILK THISTLE [Concomitant]
     Active Substance: MILK THISTLE

REACTIONS (1)
  - Hepatic haemorrhage [None]

NARRATIVE: CASE EVENT DATE: 20140721
